FAERS Safety Report 5321176-8 (Version None)
Quarter: 2007Q2

REPORT INFORMATION
  Report Type: 
  Country: None (occurrence: None)
  Receive Date: 20070507
  Receipt Date: 20070507
  Transmission Date: 20071010
  Serious: No
  Sender: FDA-Public Use
  Company Number: None

PATIENT
  Age: 33 Year
  Sex: Female
  Weight: 63.5036 kg

DRUGS (1)
  1. MONISTAT 3 COMBINATION PACK [Suspect]
     Indication: VULVOVAGINAL MYCOTIC INFECTION
     Dosage: USED ONCE
     Dates: start: 20070504, end: 20070504

REACTIONS (7)
  - DRUG HYPERSENSITIVITY [None]
  - FEELING HOT [None]
  - INSOMNIA [None]
  - VAGINAL BURNING SENSATION [None]
  - VAGINAL PAIN [None]
  - VAGINAL SWELLING [None]
  - VULVOVAGINAL PRURITUS [None]
